FAERS Safety Report 9036352 (Version 1)
Quarter: 2013Q1

REPORT INFORMATION
  Report Type: Report from Study
  Country: US (occurrence: US)
  Receive Date: 20130129
  Receipt Date: 20130129
  Transmission Date: 20140127
  Serious: No
  Sender: FDA-Public Use
  Company Number: US-ABBOTT-11P-163-0880890-00

PATIENT
  Age: 54 Year
  Sex: Male

DRUGS (9)
  1. HUMIRA 40 MG/0.8 ML PEN [Suspect]
     Indication: CROHN^S DISEASE
     Dates: start: 20111003
  2. PREDNISONE [Concomitant]
     Indication: INFLAMMATION
  3. COREG CR [Concomitant]
     Indication: BLOOD PRESSURE
  4. NORVASC [Concomitant]
     Indication: BLOOD PRESSURE
  5. AMBIEN [Concomitant]
     Indication: SLEEP DISORDER THERAPY
     Dosage: AT BEDTIME
  6. ULORIC [Concomitant]
     Indication: GOUT
  7. FLOMAX [Concomitant]
     Indication: PRODUCT USED FOR UNKNOWN INDICATION
  8. LIALDA [Concomitant]
     Indication: CROHN^S DISEASE
  9. LOMOTIL [Concomitant]
     Indication: DIARRHOEA

REACTIONS (3)
  - Muscle spasms [Recovering/Resolving]
  - Drug ineffective [Unknown]
  - Drug ineffective [Not Recovered/Not Resolved]
